FAERS Safety Report 5203887-8 (Version None)
Quarter: 2007Q1

REPORT INFORMATION
  Report Type: 
  Country: None (occurrence: None)
  Receive Date: 20070110
  Receipt Date: 20061228
  Transmission Date: 20070707
  Serious: Yes (Other)
  Sender: FDA-Public Use
  Company Number: US-SHR-US-2006-017065

PATIENT
  Age: 42 Year
  Sex: Female
  Weight: 56.689 kg

DRUGS (14)
  1. BETASERON [Suspect]
     Indication: RELAPSING-REMITTING MULTIPLE SCLEROSIS
     Dosage: 6 MIU, EVERY 2D
     Route: 058
     Dates: start: 19950327, end: 19960301
  2. BETASERON [Suspect]
     Dosage: 8 MIU, EVERY 2D
     Route: 058
     Dates: start: 19980101, end: 20060411
  3. BETASERON [Suspect]
     Dosage: 8 MIU, EVERY 2D
     Route: 058
     Dates: start: 20060414
  4. OXYBUTYNIN CHLORIDE [Concomitant]
     Indication: BLADDER SPASM
     Dosage: 5 MG, 2X/DAY
     Route: 048
     Dates: start: 19980101
  5. BACLOFEN [Concomitant]
     Indication: CLONUS
     Dosage: 10 MG, UNK
     Route: 048
     Dates: start: 19980101
  6. NITROFURANTOIN [Concomitant]
     Dosage: 50 MG, 1X/DAY
     Route: 048
     Dates: start: 19980101
  7. CLONAZEPAM [Concomitant]
     Indication: NYSTAGMUS
     Dosage: .5 MG, 2X/DAY
     Route: 048
     Dates: start: 20060617, end: 20060714
  8. CLONAZEPAM [Concomitant]
     Dosage: .5 MG, 1X/DAY
     Route: 048
     Dates: start: 20060707
  9. MECLIZINE [Concomitant]
     Indication: DIZZINESS
     Dosage: 25 MG, 4X/DAY
     Route: 048
     Dates: start: 20060630
  10. CALCIUM WITH VITAMIN D [Concomitant]
     Dosage: 500 MG, 3X/DAY
  11. VITAMIN E [Concomitant]
     Dosage: 400 IU, 1X/DAY
  12. FISH OIL [Concomitant]
     Dosage: 1760 MG, 2X/DAY
  13. MAGNESIUM [Concomitant]
     Dosage: 250 MG, 2X/DAY
  14. VITAMIN CAP [Concomitant]

REACTIONS (5)
  - DIZZINESS [None]
  - LOSS OF CONSCIOUSNESS [None]
  - MULTIPLE SCLEROSIS RELAPSE [None]
  - NAUSEA [None]
  - WOUND [None]
